FAERS Safety Report 5403233-0 (Version None)
Quarter: 2007Q3

REPORT INFORMATION
  Report Type: 
  Country: None (occurrence: None)
  Receive Date: 20070801
  Receipt Date: 20070720
  Transmission Date: 20080115
  Serious: Yes (Other)
  Sender: FDA-Public Use
  Company Number: GR-PFIZER INC-2007060961

PATIENT
  Age: 51 Year
  Sex: Male
  Weight: 100 kg

DRUGS (3)
  1. SUTENT [Suspect]
     Indication: RENAL CANCER METASTATIC
     Route: 048
  2. TILDIEM [Concomitant]
  3. MODURETIC 5-50 [Concomitant]

REACTIONS (3)
  - HAEMANGIOMA OF SKIN [None]
  - HAEMATOSPERMIA [None]
  - HAEMORRHOIDAL HAEMORRHAGE [None]
